FAERS Safety Report 13557640 (Version 2)
Quarter: 2017Q2

REPORT INFORMATION
  Report Type: Spontaneous
  Country: BR (occurrence: BR)
  Receive Date: 20170517
  Receipt Date: 20170602
  Transmission Date: 20170830
  Serious: Yes (Hospitalization)
  Sender: FDA-Public Use
  Company Number: BR-BIOMARINAP-BR-2017-114008

PATIENT
  Sex: Male
  Weight: 25.5 kg

DRUGS (4)
  1. NAGLAZYME [Suspect]
     Active Substance: GALSULFASE
     Indication: MUCOPOLYSACCHARIDOSIS VI
     Dosage: 25 MG, QW
     Route: 042
     Dates: start: 20040725
  2. TORLOS [Concomitant]
     Indication: LUNG DISORDER
     Dosage: 25 MG, QD
  3. TORLOS [Concomitant]
     Indication: CARDIAC DISORDER
  4. FUROSEMIDE. [Concomitant]
     Active Substance: FUROSEMIDE
     Indication: MICTURITION DISORDER
     Dosage: 40 MG, QD

REACTIONS (3)
  - Bedridden [Unknown]
  - H1N1 influenza [Recovered/Resolved]
  - Varicella [Recovered/Resolved]
